FAERS Safety Report 9283793 (Version 2)
Quarter: 2013Q3

REPORT INFORMATION
  Report Type: Spontaneous
  Country: CA (occurrence: CA)
  Receive Date: 20130510
  Receipt Date: 20130730
  Transmission Date: 20140515
  Serious: Yes (Death, Life-Threatening, Hospitalization)
  Sender: FDA-Public Use
  Company Number: CA-ELI_LILLY_AND_COMPANY-CA201305002085

PATIENT
  Age: 68 Year
  Sex: Male
  Weight: 63.49 kg

DRUGS (12)
  1. ALIMTA [Suspect]
     Indication: NON-SMALL CELL LUNG CANCER STAGE IV
     Dosage: 1 DF, EVERY 3 WEEKS
     Route: 042
  2. EMEND [Concomitant]
     Indication: NAUSEA
     Dosage: UNK
  3. GRAVOL [Concomitant]
     Indication: NAUSEA
     Dosage: 50 MG, BID
  4. INNOHEP [Concomitant]
     Indication: PULMONARY EMBOLISM
     Route: 058
  5. TYLENOL                                 /SCH/ [Concomitant]
     Indication: PAIN IN EXTREMITY
     Dosage: 325 MG, BID
  6. TYLENOL W/CODEINE NO. 3 [Concomitant]
  7. ZOFRAN [Concomitant]
     Indication: NAUSEA
     Dosage: 8 MG, QD
  8. FOLATE [Concomitant]
  9. VITAMIN B12 [Concomitant]
  10. SIMVASTATIN [Concomitant]
  11. HYDROCHLOROTHIAZIDE [Concomitant]
  12. ASPIRIN [Concomitant]

REACTIONS (9)
  - Death [Fatal]
  - Pneumonia [Unknown]
  - Pyrexia [Unknown]
  - Dyspnoea [Unknown]
  - Fatigue [Unknown]
  - Malaise [Unknown]
  - Oxygen saturation abnormal [Unknown]
  - Rash generalised [Unknown]
  - Asthenia [Recovering/Resolving]
